FAERS Safety Report 9716301 (Version 1)
Quarter: 2013Q4

REPORT INFORMATION
  Report Type: Spontaneous
  Country: US (occurrence: US)
  Receive Date: 20131127
  Receipt Date: 20131127
  Transmission Date: 20140711
  Serious: Yes (Hospitalization)
  Sender: FDA-Public Use
  Company Number: US-MALLINCKRODT-T201304950

PATIENT
  Age: 38 Year
  Sex: Male
  Weight: 72.73 kg

DRUGS (1)
  1. FENTANYL CITRATE [Suspect]
     Indication: PRODUCT USED FOR UNKNOWN INDICATION
     Dosage: UNK
     Route: 048

REACTIONS (4)
  - Suicide attempt [Unknown]
  - Coma [Unknown]
  - Cardiac arrest [Unknown]
  - Respiratory arrest [Unknown]
